FAERS Safety Report 9733393 (Version 2)
Quarter: 2013Q4

REPORT INFORMATION
  Report Type: Spontaneous
  Country: CA (occurrence: CA)
  Receive Date: 20131205
  Receipt Date: 20131217
  Transmission Date: 20140711
  Serious: Yes (Other)
  Sender: FDA-Public Use
  Company Number: CA-GLAXOSMITHKLINE-A1051681A

PATIENT
  Age: 75 Year
  Sex: Female
  Weight: 63.5 kg

DRUGS (2)
  1. NICORETTE 4MG GUM [Suspect]
     Indication: SMOKING CESSATION THERAPY
     Route: 002
  2. NICORETTE 2 MG [Concomitant]
     Indication: SMOKING CESSATION THERAPY
     Route: 002

REACTIONS (5)
  - Nicotine dependence [Not Recovered/Not Resolved]
  - Overdose [Unknown]
  - Inappropriate schedule of drug administration [Unknown]
  - Stomatitis [Not Recovered/Not Resolved]
  - Abscess oral [Not Recovered/Not Resolved]
